FAERS Safety Report 13908928 (Version 1)
Quarter: 2017Q3

REPORT INFORMATION
  Report Type: Spontaneous
  Country: KR (occurrence: KR)
  Receive Date: 20170828
  Receipt Date: 20170828
  Transmission Date: 20171127
  Serious: Yes (Hospitalization)
  Sender: FDA-Public Use
  Company Number: KR-BION-006599

PATIENT
  Age: 75 Year
  Sex: Male

DRUGS (2)
  1. CALCIUM CITRATE [Suspect]
     Active Substance: CALCIUM CITRATE
     Indication: HYPOPARATHYROIDISM
  2. ERGOCALCIFEROL. [Suspect]
     Active Substance: ERGOCALCIFEROL
     Indication: HYPOPARATHYROIDISM
     Dosage: HIGH DOSE

REACTIONS (3)
  - Acute myocardial infarction [Unknown]
  - Hypervitaminosis D [Unknown]
  - Hypercalcaemia [Recovered/Resolved]
